FAERS Safety Report 8402014 (Version 2)
Quarter: 2013Q2

REPORT INFORMATION
  Report Type: Spontaneous
  Country: US (occurrence: None)
  Receive Date: 20111227
  Receipt Date: 20120426
  Transmission Date: 20140414
  Serious: No
  Sender: FDA-Public Use
  Company Number: PHEH2011US009474

PATIENT
  Age: 34 Year
  Sex: Female

DRUGS (3)
  1. GILENYA [Suspect]
     Indication: MULTIPLE SCLEROSIS
     Route: 048
     Dates: start: 20110401
  2. VESICARE [Concomitant]
  3. ENABLEX [Concomitant]

REACTIONS (8)
  - WHITE BLOOD CELL COUNT DECREASED [None]
  - CD4/CD8 RATIO DECREASED [None]
  - RED BLOOD CELL COUNT DECREASED [None]
  - NEUTROPHIL COUNT DECREASED [None]
  - CD4 LYMPHOCYTES DECREASED [None]
  - RED CELL DISTRIBUTION WIDTH INCREASED [None]
  - LYMPHOCYTE COUNT DECREASED [None]
  - Urinary tract infection [None]
